FAERS Safety Report 22523314 (Version 1)
Quarter: 2023Q2

REPORT INFORMATION
  Report Type: Spontaneous
  Country: KR (occurrence: KR)
  Receive Date: 20230606
  Receipt Date: 20230606
  Transmission Date: 20230722
  Serious: Yes (Hospitalization, Other)
  Sender: FDA-Public Use
  Company Number: KR-CELLTRION INC.-2023KR010132

PATIENT

DRUGS (3)
  1. INFLIXIMAB [Suspect]
     Active Substance: INFLIXIMAB
     Indication: Crohn^s disease
     Dosage: 120 MG PEN INJ, EVERY 2 WEEKS
     Route: 058
  2. PENTASA [Concomitant]
     Active Substance: MESALAMINE
     Dosage: 1 TAB, BID (STARTED 10 YEARS AGO)
  3. FERROUS SULFATE\PROTEASE [Concomitant]
     Active Substance: FERROUS SULFATE\PROTEASE
     Dosage: 2 TABS, BID (STARTED 10 YEARS AGO)

REACTIONS (4)
  - Crohn^s disease [Not Recovered/Not Resolved]
  - Abdominal pain [Not Recovered/Not Resolved]
  - Injection site pain [Recovered/Resolved]
  - Intentional dose omission [Unknown]

NARRATIVE: CASE EVENT DATE: 20230531
